FAERS Safety Report 6977247-3 (Version None)
Quarter: 2010Q3

REPORT INFORMATION
  Report Type: 
  Country: None (occurrence: None)
  Receive Date: 20100910
  Receipt Date: 20100903
  Transmission Date: 20110219
  Serious: Yes (Hospitalization)
  Sender: FDA-Public Use
  Company Number: US-ELI_LILLY_AND_COMPANY-US201009001617

PATIENT
  Age: 35 Year
  Sex: Male

DRUGS (3)
  1. HUMALOG MIX 75/25 [Suspect]
     Indication: DIABETES MELLITUS
     Dosage: 35 U, EACH MORNING
  2. HUMALOG MIX 75/25 [Suspect]
     Dosage: 44 U, EACH EVENING
  3. ORAL ANTIDIABETICS [Concomitant]

REACTIONS (1)
  - SCHIZOPHRENIA [None]
